FAERS Safety Report 7340979-1 (Version None)
Quarter: 2011Q1

REPORT INFORMATION
  Report Type: 
  Country: None (occurrence: None)
  Receive Date: 20110309
  Receipt Date: 20101124
  Transmission Date: 20110831
  Serious: No
  Sender: FDA-Public Use
  Company Number: US-ABBOTT-10P-163-0687876-00

PATIENT
  Sex: Female

DRUGS (5)
  1. LORTAB [Concomitant]
     Indication: PAIN
  2. AYGESTIN [Concomitant]
     Indication: ENDOMETRIOSIS
  3. IBUPROFEN [Concomitant]
     Indication: PAIN
  4. LUPRON DEPOT [Suspect]
     Indication: ENDOMETRIOSIS
     Dates: start: 20100903
  5. ZOLOFT [Concomitant]
     Indication: PRODUCT USED FOR UNKNOWN INDICATION

REACTIONS (2)
  - ARTHRALGIA [None]
  - MYALGIA [None]
